FAERS Safety Report 5731931-8 (Version None)
Quarter: 2008Q2

REPORT INFORMATION
  Report Type: 
  Country: None (occurrence: None)
  Receive Date: 20080506
  Receipt Date: 20080506
  Transmission Date: 20081010
  Serious: Yes (Other)
  Sender: FDA-Public Use
  Company Number: None

PATIENT
  Age: 60 Year
  Sex: Male

DRUGS (10)
  1. DIGITEK 0.25MG ACTAVIS [Suspect]
     Indication: BUNDLE BRANCH BLOCK LEFT
     Dosage: ONE DAILY, PO
     Route: 048
     Dates: start: 20080402, end: 20080502
  2. LASIX [Concomitant]
  3. NORTRIPTYLINE HCL [Concomitant]
  4. CLONAZEPAM [Concomitant]
  5. COREG [Concomitant]
  6. LEXAPRO [Concomitant]
  7. ZETIA [Concomitant]
  8. SIMVASTATIN [Concomitant]
  9. LOVAZA [Concomitant]
  10. RAMIPRIL [Concomitant]

REACTIONS (3)
  - DIZZINESS [None]
  - HEART RATE INCREASED [None]
  - PHARMACEUTICAL PRODUCT COMPLAINT [None]
